FAERS Safety Report 5834836-7 (Version None)
Quarter: 2008Q3

REPORT INFORMATION
  Report Type: 
  Country: None (occurrence: None)
  Receive Date: 20080805
  Receipt Date: 20080725
  Transmission Date: 20090109
  Serious: Yes (Other)
  Sender: FDA-Public Use
  Company Number: US-ELI_LILLY_AND_COMPANY-US200807005876

PATIENT
  Sex: Female

DRUGS (8)
  1. HUMULIN N [Suspect]
     Dosage: 16 U, EACH MORNING
     Dates: start: 19960301
  2. HUMULIN N [Suspect]
     Dosage: 8 U, EACH EVENING
     Dates: start: 19960301
  3. HUMULIN R [Suspect]
     Dosage: 2 U, UNK
     Dates: start: 19960301
  4. HUMULIN R [Suspect]
     Dosage: 4 U, EACH MORNING
  5. HUMULIN R [Suspect]
     Dosage: 4 U, EACH EVENING
  6. EFFEXOR [Concomitant]
     Indication: DEPRESSION
  7. LORAZEPAM [Concomitant]
     Indication: ANXIETY
  8. FOSAMAX [Concomitant]
     Indication: OSTEOPOROSIS

REACTIONS (6)
  - BLINDNESS [None]
  - BLOOD GLUCOSE DECREASED [None]
  - BLOOD GLUCOSE INCREASED [None]
  - DIABETIC RETINOPATHY [None]
  - RETINAL DETACHMENT [None]
  - STRESS [None]
